FAERS Safety Report 10339539 (Version 2)
Quarter: 2015Q1

REPORT INFORMATION
  Report Type: Spontaneous
  Country: NL (occurrence: NL)
  Receive Date: 20140724
  Receipt Date: 20150127
  Transmission Date: 20150720
  Serious: Yes (Death)
  Sender: FDA-Public Use
  Company Number: NL-PFIZER INC-2014203240

PATIENT
  Age: 75 Year
  Sex: Female

DRUGS (6)
  1. SOMAVERT [Suspect]
     Active Substance: PEGVISOMANT
     Indication: ACROMEGALY
     Dosage: 80 MG, WEEKLY
     Route: 058
     Dates: start: 20111117
  2. LEVOTHYROXINE [Concomitant]
     Active Substance: LEVOTHYROXINE
     Dosage: 150 UG, UNK
     Route: 048
  3. PERINDOPRIL [Concomitant]
     Active Substance: PERINDOPRIL
     Dosage: 4 MG + 8 MG, UNK
     Route: 048
  4. HYDROCHLOROTHIAZIDE. [Concomitant]
     Active Substance: HYDROCHLOROTHIAZIDE
     Dosage: 25 MG, UNK
     Route: 048
  5. NIFEDIPINE. [Concomitant]
     Active Substance: NIFEDIPINE
     Dosage: 30 MG, UNK
     Route: 048
  6. OCTREOTIDE [Concomitant]
     Active Substance: OCTREOTIDE
     Dosage: 30 MG, UNK
     Route: 058

REACTIONS (1)
  - Thyroid cancer [Fatal]

NARRATIVE: CASE EVENT DATE: 20140627
